FAERS Safety Report 4365190-8 (Version None)
Quarter: 2004Q2

REPORT INFORMATION
  Report Type: 
  Country: None (occurrence: None)
  Receive Date: 20040525
  Receipt Date: 20040308
  Transmission Date: 20050107
  Serious: No
  Sender: FDA-Public Use
  Company Number: PHEH2004US02751

PATIENT
  Age: 83 Year
  Sex: Female

DRUGS (6)
  1. ZELNORM [Suspect]
     Indication: CONSTIPATION
     Dosage: 6 MG, BID, UNK
     Route: 065
     Dates: start: 20040223
  2. LIPITOR [Concomitant]
  3. SYNTHROID [Concomitant]
  4. DARVOCET-N (DEXTROPROPOXYPHENE NAPSILATE) [Concomitant]
  5. HYDROCHLOROTHIAZIDE [Concomitant]
  6. AMLODIPINE BESYLATE [Concomitant]

REACTIONS (1)
  - STOOLS WATERY [None]
